FAERS Safety Report 5443942-0 (Version None)
Quarter: 2007Q3

REPORT INFORMATION
  Report Type: 
  Country: None (occurrence: None)
  Receive Date: 20070731
  Receipt Date: 20070605
  Transmission Date: 20080115
  Serious: No
  Sender: FDA-Public Use
  Company Number: US200706001299

PATIENT
  Age: 72 Year
  Sex: Female
  Weight: 77.1 kg

DRUGS (5)
  1. BYETTA [Suspect]
     Indication: INSULIN-REQUIRING TYPE II DIABETES MELLITUS
     Dosage: 5 UG, 2/D, SUBCUTANEOUS
     Route: 058
     Dates: start: 20070505
  2. LANTUS [Concomitant]
  3. METFORMIN HCL [Concomitant]
  4. ACTOS [Concomitant]
  5. GLIMEPIRIDE [Concomitant]

REACTIONS (3)
  - BLOOD GLUCOSE DECREASED [None]
  - DECREASED APPETITE [None]
  - WEIGHT INCREASED [None]
